FAERS Safety Report 4838115-6 (Version None)
Quarter: 2005Q4

REPORT INFORMATION
  Report Type: 
  Country: None (occurrence: None)
  Receive Date: 20051128
  Receipt Date: 20051117
  Transmission Date: 20060501
  Serious: Yes (Disabling)
  Sender: FDA-Public Use
  Company Number: CH-AVENTIS-200520128GDDC

PATIENT
  Age: 70 Year
  Sex: Male

DRUGS (13)
  1. LANTUS [Suspect]
     Indication: DIABETES MELLITUS
     Route: 058
     Dates: start: 20031110, end: 20050404
  2. ASPIRIN [Concomitant]
     Indication: CARDIAC DISORDER
     Route: 048
     Dates: start: 20021201
  3. TOREM [Concomitant]
     Indication: OEDEMA
     Route: 048
     Dates: start: 20021201
  4. HYGROTON [Concomitant]
     Indication: HYPERTENSION
     Route: 048
     Dates: start: 20021201
  5. PLENDIL [Concomitant]
     Indication: HYPERTENSION
     Route: 048
     Dates: start: 20021201
  6. DEPONIT [Concomitant]
     Indication: CARDIAC DISORDER
     Route: 062
     Dates: start: 20021201
  7. SORTIS [Concomitant]
     Indication: HYPERLIPIDAEMIA
     Route: 048
     Dates: start: 20021201
  8. ROCALTROL [Concomitant]
     Indication: HYPERPARATHYROIDISM
     Dosage: DOSE: 3 X 0.5 MG
     Route: 048
     Dates: start: 20030101
  9. HUMALOG [Concomitant]
     Route: 058
     Dates: start: 20030101
  10. SERETIDE DISKUS [Concomitant]
     Indication: ASTHMA
     Route: 055
     Dates: start: 20030101
  11. VENOFER [Concomitant]
     Indication: BLOOD IRON
     Dates: start: 20030101
  12. CALCIMAGON [Concomitant]
     Indication: HYPOCALCAEMIA
     Route: 048
     Dates: start: 20041101
  13. VESDIL FORTE [Concomitant]
     Indication: HYPERTENSION
     Route: 048
     Dates: start: 20021201

REACTIONS (2)
  - RETINOPATHY PROLIFERATIVE [None]
  - VISUAL ACUITY REDUCED [None]
